FAERS Safety Report 9160202 (Version 4)
Quarter: 2014Q1

REPORT INFORMATION
  Report Type: Spontaneous
  Country: US (occurrence: US)
  Receive Date: 20130313
  Receipt Date: 20140102
  Transmission Date: 20141002
  Serious: No
  Sender: FDA-Public Use
  Company Number: US-TEVA-390802USA

PATIENT
  Sex: Female

DRUGS (10)
  1. FENTANYL [Suspect]
     Indication: PAIN
     Route: 048
  2. FENTANYL [Suspect]
     Route: 048
  3. FENTANYL [Suspect]
     Route: 048
  4. FENTANYL [Suspect]
     Route: 048
  5. OXYCODONE [Concomitant]
     Indication: PAIN
     Dosage: QD
     Route: 048
  6. TOPROL [Concomitant]
     Indication: HYPERTENSION
     Dosage: QD
     Route: 048
  7. ZOFRAN [Concomitant]
     Indication: NAUSEA
     Dosage: QD BID
  8. KLONOPIN [Concomitant]
     Indication: ANXIETY
     Dosage: TID
     Route: 048
  9. XANAX [Concomitant]
     Indication: ANXIETY
     Dosage: PRN
     Route: 048
  10. ALBUTEROL [Concomitant]
     Indication: DYSPNOEA
     Dosage: BID PRN

REACTIONS (4)
  - Vomiting [Not Recovered/Not Resolved]
  - Off label use [Unknown]
  - Emotional disorder [Unknown]
  - Drug ineffective [Not Recovered/Not Resolved]
